FAERS Safety Report 4309905-3 (Version None)
Quarter: 2004Q1

REPORT INFORMATION
  Report Type: 
  Country: None (occurrence: None)
  Receive Date: 20040303
  Receipt Date: 20040122
  Transmission Date: 20041129
  Serious: Yes (Other)
  Sender: FDA-Public Use
  Company Number: US-BRISTOL-MYERS SQUIBB COMPANY-12485561

PATIENT
  Age: 30 Year
  Sex: Female
  Weight: 77 kg

DRUGS (3)
  1. ABILIFY [Suspect]
     Indication: FLIGHT OF IDEAS
     Route: 048
     Dates: start: 20031101
  2. PAXIL [Concomitant]
  3. KLONOPIN [Concomitant]

REACTIONS (1)
  - WEIGHT INCREASED [None]
